FAERS Safety Report 8254191-5 (Version None)
Quarter: 2012Q2

REPORT INFORMATION
  Report Type: 
  Country: None (occurrence: None)
  Receive Date: 20120402
  Receipt Date: 20120321
  Transmission Date: 20120825
  Serious: No
  Sender: FDA-Public Use
  Company Number: US-AMGEN-USASP2012018292

PATIENT
  Sex: Male

DRUGS (6)
  1. ASPIRIN [Concomitant]
     Dosage: UNK MG, UNK
  2. SIMVASTATIN [Concomitant]
     Dosage: UNK
  3. CELEBREX [Concomitant]
     Dosage: UNK
  4. MULTIVITAMIN                       /00097801/ [Concomitant]
     Dosage: UNK
  5. ENBREL [Suspect]
     Indication: PSORIATIC ARTHROPATHY
     Dosage: 50 MG, QWK
     Dates: start: 20111001
  6. BENAZEPRIL HYDROCHLORIDE [Concomitant]
     Dosage: UNK

REACTIONS (2)
  - CONTUSION [None]
  - LIVER FUNCTION TEST ABNORMAL [None]
